FAERS Safety Report 8525636-8 (Version None)
Quarter: 2012Q3

REPORT INFORMATION
  Report Type: 
  Country: None (occurrence: None)
  Receive Date: 20120720
  Receipt Date: 20120717
  Transmission Date: 20120928
  Serious: Yes (Other)
  Sender: FDA-Public Use
  Company Number: US-PFIZER INC-2012124033

PATIENT
  Sex: Male

DRUGS (10)
  1. PULMICORT [Concomitant]
     Indication: ASTHMA
     Dosage: TWICE A DAY, AS NEEDED
  2. ALBUTEROL [Concomitant]
     Dosage: UNK
  3. LYRICA [Suspect]
     Indication: POST HERPETIC NEURALGIA
     Dosage: 75 MG, 2X/DAY, DURATION OF TREATMENT 3 DAYS
     Route: 048
     Dates: start: 20120521, end: 20120523
  4. VIAGRA [Concomitant]
     Indication: ERECTILE DYSFUNCTION
     Dosage: AS NEEDED (PRN)
  5. CLARITIN-D [Concomitant]
     Dosage: AS NEEDED (PRN)
  6. ALBUTEROL [Concomitant]
     Indication: ASTHMA
     Dosage: TWICE A DAY, AS NEEDED
     Route: 055
  7. LISINOPRIL [Concomitant]
  8. FLOMAX [Concomitant]
     Dosage: 0.4 UNK, ONCE A DAY
  9. LYRICA [Suspect]
     Indication: NEURALGIA
     Dosage: 75 MG, 1X/DAY
     Route: 048
     Dates: start: 20120521, end: 20120522
  10. LISINOPRIL [Concomitant]
     Indication: HYPERTENSION
     Dosage: 20 MG, TWICE A DAY

REACTIONS (2)
  - ASTHMA [None]
  - DYSPNOEA [None]
